FAERS Safety Report 17237923 (Version 2)
Quarter: 2020Q1

REPORT INFORMATION
  Report Type: Spontaneous
  Country: US (occurrence: US)
  Receive Date: 20200106
  Receipt Date: 20200129
  Transmission Date: 20200409
  Serious: Yes (Hospitalization, Other)
  Sender: FDA-Public Use
  Company Number: US-PFIZER INC-2019563217

PATIENT
  Age: 61 Year
  Sex: Male
  Weight: 99 kg

DRUGS (4)
  1. LYRICA [Suspect]
     Active Substance: PREGABALIN
     Indication: MUSCLE TWITCHING
     Dosage: 150 MG, 1X/DAY AT NIGHT
     Route: 048
     Dates: start: 2019, end: 20191211
  2. LYRICA [Suspect]
     Active Substance: PREGABALIN
     Indication: TREMOR
     Dosage: 50-75 MG
  3. LYRICA [Suspect]
     Active Substance: PREGABALIN
     Indication: NEURALGIA
     Dosage: 300 MG, DAILY (150MG IN MORNING AND 150 MG AT NIGHT)
     Route: 048
     Dates: start: 201909, end: 2019
  4. LYRICA [Suspect]
     Active Substance: PREGABALIN
     Indication: NEURALGIA

REACTIONS (15)
  - Swelling [Unknown]
  - Hypothermia [Unknown]
  - Oxygen saturation abnormal [Unknown]
  - Feeling abnormal [Unknown]
  - Weight decreased [Unknown]
  - Somnolence [Unknown]
  - Spinal cord disorder [Unknown]
  - Hypotension [Unknown]
  - Confusional state [Unknown]
  - Gait inability [Unknown]
  - Movement disorder [Unknown]
  - Renal failure [Not Recovered/Not Resolved]
  - Vomiting [Unknown]
  - Incoherent [Unknown]
  - Body height decreased [Unknown]

NARRATIVE: CASE EVENT DATE: 2019
